FAERS Safety Report 5703006-5 (Version None)
Quarter: 2008Q2

REPORT INFORMATION
  Report Type: 
  Country: None (occurrence: None)
  Receive Date: 20080408
  Receipt Date: 20080325
  Transmission Date: 20081010
  Serious: Yes (Hospitalization, Other)
  Sender: FDA-Public Use
  Company Number: 2007BI023371

PATIENT
  Age: 6 Year
  Sex: Female

DRUGS (4)
  1. AVONEX [Suspect]
     Indication: RELAPSING-REMITTING MULTIPLE SCLEROSIS
     Dosage: 30 UG;QM;IM
     Route: 042
     Dates: start: 20071006
  2. ALENDRONATE SODIUM [Concomitant]
  3. FAMOTIDINE [Concomitant]
  4. NOVANTRONE [Concomitant]

REACTIONS (7)
  - CHILLS [None]
  - CONVULSION [None]
  - FEBRILE CONVULSION [None]
  - INFLUENZA LIKE ILLNESS [None]
  - MULTIPLE SCLEROSIS RELAPSE [None]
  - NASOPHARYNGITIS [None]
  - STRESS [None]
